FAERS Safety Report 9007094 (Version 2)
Quarter: 2013Q2

REPORT INFORMATION
  Report Type: Spontaneous
  Country: US (occurrence: US)
  Receive Date: 20130110
  Receipt Date: 20130430
  Transmission Date: 20140414
  Serious: Yes (Death, Congenital Anomaly, Other)
  Sender: FDA-Public Use
  Company Number: US-PFIZER INC-2013008955

PATIENT
  Sex: Female

DRUGS (12)
  1. ZOLOFT [Suspect]
     Dosage: UNK
     Route: 064
     Dates: start: 2008, end: 200907
  2. ZOLOFT [Suspect]
     Dosage: UNK
     Route: 064
     Dates: start: 20091113, end: 20100115
  3. SERTRALINE HCL [Suspect]
     Dosage: UNK
     Route: 064
     Dates: start: 2008, end: 200907
  4. SERTRALINE HCL [Suspect]
     Dosage: UNK
     Route: 064
     Dates: start: 20091113, end: 20100115
  5. PRENATAL VITAMINS [Concomitant]
     Dosage: UNK
     Route: 064
  6. METRONIDAZOLE [Concomitant]
     Dosage: UNK
     Route: 064
  7. NITROFURANTOIN [Concomitant]
     Dosage: UNK
     Route: 064
  8. TERCONAZOLE [Concomitant]
     Dosage: UNK
     Route: 064
  9. METOCLOPRAMIDE [Concomitant]
     Dosage: UNK
     Route: 064
  10. PROMETHEGAN [Concomitant]
     Dosage: UNK
     Route: 064
  11. DOXYCYCLINE [Concomitant]
     Dosage: UNK
     Route: 064
  12. PROMETHAZINE [Concomitant]
     Dosage: UNK
     Route: 064

REACTIONS (7)
  - Maternal exposure timing unspecified [Fatal]
  - Brain malformation [Fatal]
  - Congenital hydrocephalus [Fatal]
  - Pulmonary hypoplasia [Fatal]
  - Congenital cerebellar agenesis [Fatal]
  - Congenital musculoskeletal anomaly [Fatal]
  - Premature baby [Unknown]
